FAERS Safety Report 18761431 (Version 1)
Quarter: 2021Q1

REPORT INFORMATION
  Report Type: Spontaneous
  Country: US (occurrence: US)
  Receive Date: 20210119
  Receipt Date: 20210119
  Transmission Date: 20210419
  Serious: Yes (Life-Threatening, Hospitalization)
  Sender: FDA-Public Use
  Company Number: None

PATIENT
  Age: 23 Year
  Sex: Female
  Weight: 60.33 kg

DRUGS (2)
  1. NORCO [Concomitant]
     Active Substance: ACETAMINOPHEN\HYDROCODONE BITARTRATE
  2. COPPER IUD [Suspect]
     Active Substance: COPPER

REACTIONS (7)
  - Abdominal pain upper [None]
  - Vaginal haemorrhage [None]
  - Pregnancy test positive [None]
  - Pregnancy with contraceptive device [None]
  - Confusional state [None]
  - Dysmenorrhoea [None]
  - Ectopic pregnancy [None]

NARRATIVE: CASE EVENT DATE: 20201211
